FAERS Safety Report 15794036 (Version 4)
Quarter: 2019Q2

REPORT INFORMATION
  Report Type: Spontaneous
  Country: US (occurrence: US)
  Receive Date: 20190107
  Receipt Date: 20190611
  Transmission Date: 20190711
  Serious: No
  Sender: FDA-Public Use
  Company Number: US-SA-2019SA002600

PATIENT
  Age: 63 Year
  Sex: Female

DRUGS (1)
  1. LOVENOX [Suspect]
     Active Substance: ENOXAPARIN SODIUM
     Dosage: 200 MG, QD
     Route: 065

REACTIONS (4)
  - Product colour issue [Unknown]
  - Poor quality product administered [Unknown]
  - Fatigue [Unknown]
  - Hypersomnia [Unknown]
